FAERS Safety Report 9780166 (Version 2)
Quarter: 2015Q1

REPORT INFORMATION
  Report Type: Report from Study
  Country: GB (occurrence: GB)
  Receive Date: 20131223
  Receipt Date: 20150107
  Transmission Date: 20150721
  Serious: Yes (Other)
  Sender: FDA-Public Use
  Company Number: PHHO2013GB016465

PATIENT
  Age: 53 Year
  Sex: Male
  Weight: 75 kg

DRUGS (7)
  1. CODEINE [Concomitant]
     Active Substance: CODEINE
     Indication: DIARRHOEA
     Dosage: 30 MG, UNK
     Route: 065
     Dates: start: 20071101
  2. LANSOPRAZOLE. [Concomitant]
     Active Substance: LANSOPRAZOLE
     Indication: GASTROOESOPHAGEAL REFLUX DISEASE
     Dosage: 30 MG, UNK
     Route: 065
     Dates: start: 20130916
  3. LOPERAMIDE [Concomitant]
     Active Substance: LOPERAMIDE
     Indication: DIARRHOEA
     Dosage: 2 MG, UNK
     Route: 065
     Dates: start: 20071101
  4. STI571 [Suspect]
     Active Substance: IMATINIB MESYLATE
     Indication: GASTROINTESTINAL STROMAL TUMOUR
     Dosage: UNK
     Route: 048
     Dates: start: 20121231, end: 20131202
  5. MAGNESIUM [Concomitant]
     Active Substance: MAGNESIUM
     Indication: HYPOMAGNESAEMIA
     Dosage: 4 MMOL, UNK
     Route: 065
     Dates: start: 20130813
  6. BKM120 [Suspect]
     Active Substance: BUPARLISIB HYDROCHLORIDE
     Indication: GASTROINTESTINAL STROMAL TUMOUR
     Dosage: 80 MG, UNK
     Route: 048
     Dates: start: 20121231, end: 20131202
  7. SANDO K [Concomitant]
     Indication: HYPOKALAEMIA
     Dosage: 12 MMOL, UNK
     Route: 065
     Dates: start: 20130813

REACTIONS (1)
  - Hypoglycaemia [Not Recovered/Not Resolved]

NARRATIVE: CASE EVENT DATE: 20131202
